FAERS Safety Report 24877593 (Version 5)
Quarter: 2025Q3

REPORT INFORMATION
  Report Type: Spontaneous
  Country: US (occurrence: US)
  Receive Date: 20250123
  Receipt Date: 20250820
  Transmission Date: 20251020
  Serious: Yes (Hospitalization)
  Sender: SANOFI AVENTIS
  Company Number: US-SA-2025SA020578

PATIENT
  Age: 37 Year
  Sex: Female
  Weight: 107.94 kg

DRUGS (42)
  1. REZUROCK [Suspect]
     Active Substance: BELUMOSUDIL
     Indication: Chronic graft versus host disease
     Dosage: 200 MG, QD
     Route: 048
     Dates: start: 202306
  2. JAKAFI [Suspect]
     Active Substance: RUXOLITINIB
     Indication: Chronic graft versus host disease
     Dosage: 5 MG, QD
     Route: 048
  3. JAKAFI [Suspect]
     Active Substance: RUXOLITINIB
     Dosage: 5 MG, QD
     Route: 048
  4. FAMOTIDINE [Concomitant]
     Active Substance: FAMOTIDINE
  5. NORA BE [Concomitant]
     Active Substance: NORETHINDRONE
  6. LANTUS [Concomitant]
     Active Substance: INSULIN GLARGINE
  7. IBUPROFEN [Concomitant]
     Active Substance: IBUPROFEN
  8. ASPIRIN [Concomitant]
     Active Substance: ASPIRIN
  9. MUPIROCIN [Concomitant]
     Active Substance: MUPIROCIN
  10. VITAMIN D3 [Concomitant]
     Active Substance: CHOLECALCIFEROL
  11. XARELTO [Concomitant]
     Active Substance: RIVAROXABAN
  12. ZYRTEC [Concomitant]
     Active Substance: CETIRIZINE HYDROCHLORIDE
  13. MAGNESIUM OXIDE [Concomitant]
     Active Substance: MAGNESIUM OXIDE
  14. DEXAMETHASONE [Concomitant]
     Active Substance: DEXAMETHASONE
  15. FUROSEMIDE [Concomitant]
     Active Substance: FUROSEMIDE
  16. BACTRIM DS [Concomitant]
     Active Substance: SULFAMETHOXAZOLE\TRIMETHOPRIM
  17. PENTOXIFYLLINE [Concomitant]
     Active Substance: PENTOXIFYLLINE
  18. POTASSIUM CHLORIDE [Concomitant]
     Active Substance: POTASSIUM CHLORIDE
  19. ACYCLOVIR [Concomitant]
     Active Substance: ACYCLOVIR
  20. ACYCLOVIR [Concomitant]
     Active Substance: ACYCLOVIR
  21. ICLUSIG [Concomitant]
     Active Substance: PONATINIB HYDROCHLORIDE
  22. PREDNISONE [Concomitant]
     Active Substance: PREDNISONE
  23. HUMULIN R [Concomitant]
     Active Substance: INSULIN HUMAN
  24. ATORVASTATIN CALCIUM [Concomitant]
     Active Substance: ATORVASTATIN CALCIUM
  25. NYSTATIN [Concomitant]
     Active Substance: NYSTATIN
  26. CIPRO [Concomitant]
     Active Substance: CIPROFLOXACIN HYDROCHLORIDE
  27. TACROLIMUS [Concomitant]
     Active Substance: TACROLIMUS
  28. MOUNJARO [Concomitant]
     Active Substance: TIRZEPATIDE
  29. DULOXETINE HYDROCHLORIDE [Concomitant]
     Active Substance: DULOXETINE HYDROCHLORIDE
  30. BUDESONIDE [Concomitant]
     Active Substance: BUDESONIDE
  31. PROTONIX [Concomitant]
     Active Substance: PANTOPRAZOLE SODIUM
  32. DASATINIB [Concomitant]
     Active Substance: DASATINIB
  33. METOPROLOL SUCCINATE [Concomitant]
     Active Substance: METOPROLOL SUCCINATE
  34. TRIAMCINOLONE ACETONIDE [Concomitant]
     Active Substance: TRIAMCINOLONE ACETONIDE
  35. NITROGLYCERIN [Concomitant]
     Active Substance: NITROGLYCERIN
  36. CALCIUM CITRATE\CHOLECALCIFEROL [Concomitant]
     Active Substance: CALCIUM CITRATE\CHOLECALCIFEROL
  37. CLOPIDOGREL BISULFATE [Concomitant]
     Active Substance: CLOPIDOGREL BISULFATE
  38. ALVESCO [Concomitant]
     Active Substance: CICLESONIDE
  39. PROCHLORPERAZINE MALEATE [Concomitant]
     Active Substance: PROCHLORPERAZINE MALEATE
  40. LEVOTHYROXINE SODIUM [Concomitant]
     Active Substance: LEVOTHYROXINE SODIUM
  41. ZOFRAN [Concomitant]
     Active Substance: ONDANSETRON HYDROCHLORIDE
  42. ALBUTEROL SULFATE [Concomitant]
     Active Substance: ALBUTEROL SULFATE

REACTIONS (10)
  - Lumbar puncture [Unknown]
  - COVID-19 [Recovered/Resolved]
  - Abdominal pain [Recovering/Resolving]
  - Headache [Recovering/Resolving]
  - Diarrhoea [Recovering/Resolving]
  - Nausea [Recovering/Resolving]
  - Vomiting [Recovering/Resolving]
  - Tooth infection [Recovering/Resolving]
  - Inappropriate schedule of product administration [Unknown]
  - Product dose omission in error [Unknown]

NARRATIVE: CASE EVENT DATE: 20250101
